FAERS Safety Report 9462332 (Version 1)
Quarter: 2013Q3

REPORT INFORMATION
  Report Type: Spontaneous
  Country: None (occurrence: CA)
  Receive Date: 20130816
  Receipt Date: 20130816
  Transmission Date: 20140515
  Serious: Yes (Other)
  Sender: FDA-Public Use
  Company Number: 2013SP002328

PATIENT
  Age: 52 Year
  Sex: Female
  Weight: 65 kg

DRUGS (5)
  1. LATUDA [Suspect]
     Route: 048
  2. BUPROPION [Concomitant]
  3. CIPRALEX [Concomitant]
  4. DEXEDRINE [Concomitant]
  5. SUBOXONE [Concomitant]

REACTIONS (3)
  - Post-traumatic stress disorder [Recovered/Resolved]
  - Emotional distress [Recovered/Resolved]
  - Agitation [Recovered/Resolved]
